FAERS Safety Report 9457966 (Version 2)
Quarter: 2013Q3

REPORT INFORMATION
  Report Type: Spontaneous
  Country: US (occurrence: None)
  Receive Date: 20130809
  Receipt Date: 20130829
  Transmission Date: 20140515
  Serious: Yes (Death)
  Sender: FDA-Public Use
  Company Number: 2013070473

PATIENT
  Age: 23 Year
  Sex: Male

DRUGS (2)
  1. FENTANYL [Suspect]
     Indication: ROUTINE HEALTH MAINTENANCE
  2. MIDAZOLAM [Suspect]

REACTIONS (11)
  - Oropharyngeal pain [None]
  - Malaise [None]
  - Respiratory failure [None]
  - Unresponsive to stimuli [None]
  - General physical health deterioration [None]
  - Cardio-respiratory arrest [None]
  - Pneumonia viral [None]
  - Diffuse alveolar damage [None]
  - H1N1 influenza [None]
  - Rib fracture [None]
  - Traumatic liver injury [None]
